FAERS Safety Report 4286901-6 (Version None)
Quarter: 2004Q1

REPORT INFORMATION
  Report Type: 
  Country: None (occurrence: None)
  Receive Date: 20040128
  Receipt Date: 20040123
  Transmission Date: 20041129
  Serious: Yes (Death)
  Sender: FDA-Public Use
  Company Number: KII-2003-0004874

PATIENT

DRUGS (1)
  1. UNIPHYL [Suspect]

REACTIONS (1)
  - DEATH [None]
